FAERS Safety Report 12693548 (Version 1)
Quarter: 2016Q3

REPORT INFORMATION
  Report Type: Spontaneous
  Country: CH (occurrence: CH)
  Receive Date: 20160829
  Receipt Date: 20160829
  Transmission Date: 20161109
  Serious: Yes (Hospitalization)
  Sender: FDA-Public Use
  Company Number: CH-GALDERMA-CH16005700

PATIENT
  Age: 48 Year
  Sex: Female

DRUGS (2)
  1. ORACEA [Suspect]
     Active Substance: DOXYCYCLINE
     Indication: ROSACEA
     Route: 048
     Dates: end: 201607
  2. GABAPENTIN. [Concomitant]
     Active Substance: GABAPENTIN
     Indication: SUNCT SYNDROME
     Route: 048
     Dates: start: 201604

REACTIONS (5)
  - Visual impairment [Recovered/Resolved]
  - Hemianaesthesia [Recovered/Resolved]
  - Dizziness [Recovered/Resolved]
  - Paraesthesia [Recovered/Resolved]
  - Nausea [Recovered/Resolved]

NARRATIVE: CASE EVENT DATE: 20160705
